FAERS Safety Report 7542254-9 (Version None)
Quarter: 2011Q2

REPORT INFORMATION
  Report Type: 
  Country: None (occurrence: None)
  Receive Date: 20110606
  Receipt Date: 20110525
  Transmission Date: 20111010
  Serious: Yes (Other)
  Sender: FDA-Public Use
  Company Number: 1000021198

PATIENT
  Age: 88 Year
  Sex: Male

DRUGS (2)
  1. TRAZODONE HCL [Concomitant]
  2. MEMANTINE [Suspect]
     Indication: DEMENTIA ALZHEIMER'S TYPE
     Dosage: 5 MG (5 MG, 1 IN 1 D), ORAL
     Route: 048
     Dates: start: 20110524, end: 20110524

REACTIONS (2)
  - HYPOTENSION [None]
  - FALL [None]
